FAERS Safety Report 4849102-6 (Version None)
Quarter: 2005Q4

REPORT INFORMATION
  Report Type: 
  Country: None (occurrence: None)
  Receive Date: 20051209
  Receipt Date: 20051202
  Transmission Date: 20060501
  Serious: Yes (Other)
  Sender: FDA-Public Use
  Company Number: US-GLAXOSMITHKLINE-A0584461A

PATIENT
  Age: 41 Year
  Sex: Female

DRUGS (4)
  1. PAROXETINE HCL [Suspect]
     Indication: TOURETTE'S DISORDER
     Dosage: 37.5MG PER DAY
     Route: 048
  2. PAXIL CR [Suspect]
     Indication: TOURETTE'S DISORDER
     Dosage: 37.5MG PER DAY
     Route: 048
     Dates: start: 20051027
  3. HALOPERIDOL [Concomitant]
  4. CLONIDINE [Concomitant]

REACTIONS (3)
  - NAUSEA [None]
  - PHARMACEUTICAL PRODUCT COMPLAINT [None]
  - TOURETTE'S DISORDER [None]
